FAERS Safety Report 25182882 (Version 3)
Quarter: 2025Q2

REPORT INFORMATION
  Report Type: Spontaneous
  Country: US (occurrence: US)
  Receive Date: 20250410
  Receipt Date: 20250512
  Transmission Date: 20250716
  Serious: Yes (Other)
  Sender: LUPIN
  Company Number: US-LUPIN PHARMACEUTICALS INC.-2025-02951

PATIENT
  Age: 72 Year

DRUGS (1)
  1. DESOXIMETASONE [Suspect]
     Active Substance: DESOXIMETASONE
     Indication: Product used for unknown indication
     Dosage: UNK, BID, TWICE A WEEK
     Route: 065

REACTIONS (4)
  - Product contamination microbial [Unknown]
  - Poor quality product administered [Unknown]
  - Product container issue [Unknown]
  - No adverse event [Unknown]
